FAERS Safety Report 18615987 (Version 1)
Quarter: 2020Q4

REPORT INFORMATION
  Report Type: Report from Study
  Country: None (occurrence: US)
  Receive Date: 20201214
  Receipt Date: 20201214
  Transmission Date: 20210114
  Serious: Yes (Other)
  Sender: FDA-Public Use
  Company Number: US-ABBVIE-20K-163-3633449-00

PATIENT
  Sex: Male
  Weight: 120.31 kg

DRUGS (9)
  1. CYMBALTA [Concomitant]
     Active Substance: DULOXETINE HYDROCHLORIDE
     Indication: ANXIETY
  2. RANITIDINE. [Concomitant]
     Active Substance: RANITIDINE
     Indication: DYSPEPSIA
  3. TRAMADOL. [Concomitant]
     Active Substance: TRAMADOL
     Indication: PAIN
  4. HUMIRA [Suspect]
     Active Substance: ADALIMUMAB
     Indication: PRODUCT USED FOR UNKNOWN INDICATION
     Route: 058
     Dates: start: 2013
  5. BENAZEPRIL [Concomitant]
     Active Substance: BENAZEPRIL HYDROCHLORIDE
     Indication: PALPITATIONS
  6. FLECAINIDE [Concomitant]
     Active Substance: FLECAINIDE
     Indication: PALPITATIONS
  7. ASPIRIN. [Concomitant]
     Active Substance: ASPIRIN
     Indication: PALPITATIONS
  8. METOPROLOL TARTRATE. [Concomitant]
     Active Substance: METOPROLOL TARTRATE
     Indication: PALPITATIONS
  9. ZOLOFT [Concomitant]
     Active Substance: SERTRALINE HYDROCHLORIDE
     Indication: SLEEP DISORDER

REACTIONS (8)
  - Joint swelling [Recovering/Resolving]
  - Gastrointestinal obstruction [Recovered/Resolved]
  - Pain [Recovered/Resolved]
  - Scar excision [Recovered/Resolved]
  - Fall [Recovered/Resolved]
  - Ligament disorder [Recovered/Resolved]
  - Knee operation [Unknown]
  - Pain [Recovered/Resolved]

NARRATIVE: CASE EVENT DATE: 2013
